FAERS Safety Report 23298266 (Version 4)
Quarter: 2024Q2

REPORT INFORMATION
  Report Type: Report from Study
  Country: CA (occurrence: CA)
  Receive Date: 20231214
  Receipt Date: 20240407
  Transmission Date: 20240716
  Serious: Yes (Other)
  Sender: FDA-Public Use
  Company Number: CA-JNJFOC-20231221852

PATIENT
  Age: 67 Year
  Sex: Male

DRUGS (4)
  1. SIMPONI [Suspect]
     Active Substance: GOLIMUMAB
     Indication: Rheumatoid arthritis
     Route: 058
  2. TYLENOL [Concomitant]
     Active Substance: ACETAMINOPHEN
  3. SULFASALAZINE [Concomitant]
     Active Substance: SULFASALAZINE
  4. HYDROMORPHONE [Concomitant]
     Active Substance: HYDROMORPHONE

REACTIONS (1)
  - Skin cancer [Recovered/Resolved]
